FAERS Safety Report 17055206 (Version 2)
Quarter: 2019Q4

REPORT INFORMATION
  Report Type: Spontaneous
  Country: US (occurrence: US)
  Receive Date: 20191120
  Receipt Date: 20191126
  Transmission Date: 20200122
  Serious: No
  Sender: FDA-Public Use
  Company Number: US-PFIZER INC-2019500429

PATIENT
  Age: 85 Year
  Sex: Male
  Weight: 90.7 kg

DRUGS (2)
  1. DOFETILIDE. [Suspect]
     Active Substance: DOFETILIDE
     Indication: ATRIAL FIBRILLATION
     Dosage: 500 UG, 2X/DAY,(500MCG TAKE ONE TWICE DAILY BY MOUTH)
     Route: 048
  2. TIKOSYN [Suspect]
     Active Substance: DOFETILIDE
     Indication: ATRIAL FIBRILLATION
     Dosage: ONE 500MCG TIKOSYN AND THEN AGAIN 4 HOURS LATER, THEN AGAIN 8 HOURS LATER

REACTIONS (1)
  - Extra dose administered [Unknown]
